APPROVED DRUG PRODUCT: CRINONE
Active Ingredient: PROGESTERONE
Strength: 8%
Dosage Form/Route: GEL;VAGINAL
Application: N020701 | Product #002
Applicant: ABBVIE INC
Approved: Jul 31, 1997 | RLD: Yes | RS: Yes | Type: RX